FAERS Safety Report 19904999 (Version 1)
Quarter: 2021Q3

REPORT INFORMATION
  Report Type: Spontaneous
  Country: US (occurrence: US)
  Receive Date: 20210930
  Receipt Date: 20210930
  Transmission Date: 20211014
  Serious: Yes (Hospitalization)
  Sender: FDA-Public Use
  Company Number: None

PATIENT
  Age: 78 Year
  Sex: Female
  Weight: 58.5 kg

DRUGS (2)
  1. PRIVIGEN [Suspect]
     Active Substance: HUMAN IMMUNOGLOBULIN G
     Indication: MYASTHENIA GRAVIS
     Dosage: ?          OTHER FREQUENCY:QD X 5D Q4WKS;?
     Route: 042
     Dates: start: 20190801
  2. PRIVIGEN [Suspect]
     Active Substance: HUMAN IMMUNOGLOBULIN G
     Indication: MYASTHENIA GRAVIS
     Dosage: ?          OTHER FREQUENCY:QD X 5 DAYS Q4WKS;?
     Route: 042
     Dates: start: 20190801

REACTIONS (6)
  - Pallor [None]
  - Feeling cold [None]
  - Infusion related reaction [None]
  - Pyrexia [None]
  - Urinary tract infection [None]
  - Nausea [None]

NARRATIVE: CASE EVENT DATE: 20210819
